FAERS Safety Report 4622236-7 (Version None)
Quarter: 2005Q1

REPORT INFORMATION
  Report Type: 
  Country: None (occurrence: None)
  Receive Date: 20050330
  Receipt Date: 20050318
  Transmission Date: 20050727
  Serious: Yes (Other)
  Sender: FDA-Public Use
  Company Number: US-JNJFOC-20040901615

PATIENT
  Sex: Female
  Weight: 58.06 kg

DRUGS (4)
  1. REMICADE [Suspect]
     Indication: RHEUMATOID ARTHRITIS
     Route: 042
  2. ETHAMBUTOL HCL [Suspect]
  3. RHEUMATREX [Concomitant]
  4. PREDNISONE [Concomitant]

REACTIONS (6)
  - ASPERGILLOSIS [None]
  - BLINDNESS [None]
  - MYCOBACTERIUM AVIUM COMPLEX INFECTION [None]
  - OBLITERATIVE BRONCHIOLITIS [None]
  - THERAPEUTIC RESPONSE DECREASED [None]
  - VISION BLURRED [None]
